FAERS Safety Report 13906212 (Version 3)
Quarter: 2017Q4

REPORT INFORMATION
  Report Type: Spontaneous
  Country: US (occurrence: US)
  Receive Date: 20170825
  Receipt Date: 20171005
  Transmission Date: 20180320
  Serious: Yes (Hospitalization, Other)
  Sender: FDA-Public Use
  Company Number: US-PFIZER INC-2017364973

PATIENT
  Age: 78 Year
  Sex: Female
  Weight: 86 kg

DRUGS (2)
  1. REVATIO [Suspect]
     Active Substance: SILDENAFIL CITRATE
     Indication: PULMONARY HYPERTENSION
     Dosage: 40 MG, 2X/DAY (TWO 20 MG TABS IN THE MORNING AND TWO 20 MG TABS IN THE EVENING)
     Route: 048
     Dates: start: 20170727
  2. REVATIO [Suspect]
     Active Substance: SILDENAFIL CITRATE
     Indication: CEREBROVASCULAR ACCIDENT PROPHYLAXIS
     Dosage: 20 MG, 2X/DAY (20 MG TABS, 1 IN THE MORNING AND 1 IN THE EVENING)
     Route: 048
     Dates: start: 2013

REACTIONS (4)
  - Pneumonia [Recovered/Resolved]
  - Expired product administered [Unknown]
  - Pleural effusion [Recovered/Resolved]
  - Product use issue [Unknown]

NARRATIVE: CASE EVENT DATE: 2013
